FAERS Safety Report 8623445-2 (Version None)
Quarter: 2012Q3

REPORT INFORMATION
  Report Type: 
  Country: None (occurrence: None)
  Receive Date: 20120827
  Receipt Date: 20120731
  Transmission Date: 20120928
  Serious: No
  Sender: FDA-Public Use
  Company Number: US-009507513-2012SP029439

PATIENT

DRUGS (2)
  1. IMPLANON [Suspect]
     Dosage: 1 DF, UNK
     Route: 059
     Dates: start: 20120530
  2. IMPLANON [Suspect]
     Indication: CONTRACEPTION
     Dosage: 68 MG/ONE IMPLANT
     Route: 059
     Dates: start: 20120530, end: 20120530

REACTIONS (2)
  - NO ADVERSE EVENT [None]
  - MEDICAL DEVICE COMPLICATION [None]
